FAERS Safety Report 8196350-6 (Version None)
Quarter: 2012Q1

REPORT INFORMATION
  Report Type: 
  Country: None (occurrence: None)
  Receive Date: 20120309
  Receipt Date: 20120304
  Transmission Date: 20120608
  Serious: No
  Sender: FDA-Public Use
  Company Number: US-PFIZER INC-2012058366

PATIENT
  Age: 75 Year
  Sex: Male

DRUGS (5)
  1. LIPITOR [Suspect]
     Dosage: 80 MG, PER DAY
  2. GLUCOVANCE [Suspect]
     Indication: DIABETES MELLITUS
     Dosage: UNK
  3. LIPITOR [Suspect]
     Indication: BLOOD CHOLESTEROL
     Dosage: UNK
  4. LIPITOR [Suspect]
     Dosage: 40 PER DAY, ONE 80 MG EVERY OTHER NIGHT
  5. LIPITOR [Suspect]
     Dosage: 60 MG PER DAY

REACTIONS (4)
  - DRUG INTOLERANCE [None]
  - LOW DENSITY LIPOPROTEIN INCREASED [None]
  - MYALGIA [None]
  - ASTHENIA [None]
